FAERS Safety Report 6602685-8 (Version None)
Quarter: 2010Q1

REPORT INFORMATION
  Report Type: 
  Country: None (occurrence: None)
  Receive Date: 20100218
  Receipt Date: 20100203
  Transmission Date: 20100710
  Serious: Yes (Hospitalization, Other)
  Sender: FDA-Public Use
  Company Number: BVT-000443

PATIENT
  Age: 4 Year
  Sex: Female
  Weight: 17.8 kg

DRUGS (2)
  1. ANAKINRA (BIOVITRUM AB,) [Suspect]
     Indication: JUVENILE ARTHRITIS
     Dosage: (100 MG)
     Dates: start: 20070601, end: 20070801
  2. PREDNISOLONE [Concomitant]

REACTIONS (2)
  - HEPATITIS ACUTE [None]
  - HEPATOCELLULAR INJURY [None]
